FAERS Safety Report 14725960 (Version 1)
Quarter: 2018Q2

REPORT INFORMATION
  Report Type: Spontaneous
  Country: FR (occurrence: FR)
  Receive Date: 20180406
  Receipt Date: 20180406
  Transmission Date: 20180711
  Serious: Yes (Other)
  Sender: FDA-Public Use
  Company Number: FR-MERCK KGAA-2045214

PATIENT
  Age: 56 Year
  Sex: Female
  Weight: 56 kg

DRUGS (14)
  1. NOVOTHYROX [Suspect]
     Active Substance: LEVOTHYROXINE SODIUM
     Dates: start: 201706
  2. EUPHYTOSE [Concomitant]
     Active Substance: HERBALS
     Dates: start: 20170213
  3. FEXOFENADINE [Concomitant]
     Active Substance: FEXOFENADINE\FEXOFENADINE HYDROCHLORIDE
     Dates: start: 20170615
  4. KETOPROFEN. [Concomitant]
     Active Substance: KETOPROFEN
     Dates: start: 20171019
  5. NOVOTHYROX [Suspect]
     Active Substance: LEVOTHYROXINE SODIUM
     Indication: PRODUCT USED FOR UNKNOWN INDICATION
     Dates: start: 2017
  6. PREDNISOLONE. [Concomitant]
     Active Substance: PREDNISOLONE
     Dates: start: 20170213
  7. CHLORHEXIDINE [Concomitant]
     Active Substance: CHLORHEXIDINE
     Dates: start: 20170615
  8. PARACETAMOL [Concomitant]
     Active Substance: ACETAMINOPHEN
     Dates: start: 20171019
  9. NOVOTHYROX [Suspect]
     Active Substance: LEVOTHYROXINE SODIUM
  10. UN-ALFA(1 MILLIGRAM) [Concomitant]
     Dates: start: 20170213
  11. PROGESTERONE. [Concomitant]
     Active Substance: PROGESTERONE
     Dates: start: 20170213
  12. OROCAL (LEKOVIT CA) [Concomitant]
     Dates: start: 20171016
  13. ESTRADIOL. [Concomitant]
     Active Substance: ESTRADIOL
     Dates: start: 20170213
  14. INEXIUM [Concomitant]
     Active Substance: ESOMEPRAZOLE
     Dates: start: 20171019

REACTIONS (25)
  - Abdominal pain upper [None]
  - Blood pressure abnormal [None]
  - Alopecia [Not Recovered/Not Resolved]
  - Syncope [Not Recovered/Not Resolved]
  - Mobility decreased [None]
  - Alexithymia [None]
  - Nausea [None]
  - Blood pressure increased [Not Recovered/Not Resolved]
  - Muscle spasms [Not Recovered/Not Resolved]
  - Blood thyroid stimulating hormone decreased [None]
  - Balance disorder [None]
  - Tension [None]
  - Pain [None]
  - Loss of personal independence in daily activities [None]
  - Depression [Not Recovered/Not Resolved]
  - Disturbance in attention [None]
  - Tachycardia [Not Recovered/Not Resolved]
  - Blindness [Not Recovered/Not Resolved]
  - Adverse event [None]
  - Headache [Not Recovered/Not Resolved]
  - Fatigue [Not Recovered/Not Resolved]
  - Dizziness [Not Recovered/Not Resolved]
  - Feeling abnormal [None]
  - Asthenia [Not Recovered/Not Resolved]
  - Hypocalcaemia [None]

NARRATIVE: CASE EVENT DATE: 2017
